FAERS Safety Report 4682628-7 (Version None)
Quarter: 2005Q2

REPORT INFORMATION
  Report Type: 
  Country: None (occurrence: None)
  Receive Date: 20050606
  Receipt Date: 20050407
  Transmission Date: 20051028
  Serious: Yes (Hospitalization, Disabling)
  Sender: FDA-Public Use
  Company Number: US-MERCK-0504USA00978

PATIENT
  Age: 56 Year
  Sex: Female
  Weight: 73 kg

DRUGS (5)
  1. VIOXX [Suspect]
     Indication: PAIN IN EXTREMITY
     Route: 048
     Dates: start: 20000215, end: 20000330
  2. ZOCOR [Concomitant]
     Route: 065
  3. GLUCOPHAGE [Concomitant]
     Route: 065
  4. LASIX [Concomitant]
     Route: 065
  5. CARDIZEM [Concomitant]
     Route: 065

REACTIONS (24)
  - ACUTE RESPIRATORY FAILURE [None]
  - BUNDLE BRANCH BLOCK LEFT [None]
  - CARDIAC FAILURE CONGESTIVE [None]
  - CHEST PAIN [None]
  - CHRONIC OBSTRUCTIVE PULMONARY DISEASE [None]
  - CORONARY ARTERY OCCLUSION [None]
  - DYSPNOEA [None]
  - GOUT [None]
  - HERPES ZOSTER [None]
  - HYPERTENSION [None]
  - ISCHAEMIC CARDIOMYOPATHY [None]
  - JOINT SWELLING [None]
  - MENTAL STATUS CHANGES [None]
  - MITRAL VALVE INCOMPETENCE [None]
  - MYOCARDIAL INFARCTION [None]
  - OBSTRUCTIVE AIRWAYS DISORDER [None]
  - PEPTIC ULCER [None]
  - PNEUMOTHORAX [None]
  - PULMONARY OEDEMA [None]
  - RENAL IMPAIRMENT [None]
  - RESPIRATORY FAILURE [None]
  - SEPSIS [None]
  - VENTRICULAR EXTRASYSTOLES [None]
  - VENTRICULAR TACHYCARDIA [None]
